FAERS Safety Report 23991366 (Version 2)
Quarter: 2024Q3

REPORT INFORMATION
  Report Type: Spontaneous
  Country: US (occurrence: US)
  Receive Date: 20240619
  Receipt Date: 20240715
  Transmission Date: 20241016
  Serious: No
  Sender: PFIZER
  Company Number: US-PFIZER INC-PV202400056281

PATIENT
  Age: 82 Year
  Sex: Female

DRUGS (3)
  1. BOSULIF [Suspect]
     Active Substance: BOSUTINIB MONOHYDRATE
     Indication: Constipation
     Dosage: 100 MG TAKE 100 MG BY MOUTH ONCE DAILY WITH FOOD FOR 2 WEEKS
     Route: 048
  2. BOSULIF [Suspect]
     Active Substance: BOSUTINIB MONOHYDRATE
     Dosage: 100 MG TABLET, TAKE 2 TABS P.O. (ORAL) DAILY
     Route: 048
  3. BOSULIF [Suspect]
     Active Substance: BOSUTINIB MONOHYDRATE
     Dosage: 300 MG, DAILY PLAN TO INCREASE IN THE UPCOMING WEEK TO 400 MG CONTINUOUSLY
     Route: 048

REACTIONS (1)
  - Off label use [Unknown]
